FAERS Safety Report 7253968-2 (Version None)
Quarter: 2011Q1

REPORT INFORMATION
  Report Type: 
  Country: None (occurrence: None)
  Receive Date: 20110129
  Receipt Date: 20100302
  Transmission Date: 20110831
  Serious: No
  Sender: FDA-Public Use
  Company Number: US-ABBOTT-10P-163-0629592-00

PATIENT
  Sex: Male
  Weight: 99.88 kg

DRUGS (4)
  1. HUMIRA [Suspect]
     Indication: CROHN'S DISEASE
     Dates: start: 20100201
  2. HUMIRA [Suspect]
     Dates: start: 20090801
  3. HUMIRA [Suspect]
     Indication: CROHN'S DISEASE
     Dates: start: 20100201
  4. HUMIRA [Suspect]
     Dates: start: 20090801

REACTIONS (2)
  - CROHN'S DISEASE [None]
  - INJECTION SITE HAEMATOMA [None]
